FAERS Safety Report 12504461 (Version 1)
Quarter: 2016Q2

REPORT INFORMATION
  Report Type: Spontaneous
  Country: US (occurrence: US)
  Receive Date: 20160628
  Receipt Date: 20160628
  Transmission Date: 20160815
  Serious: No
  Sender: FDA-Public Use
  Company Number: US-PFIZER INC-2016316859

PATIENT

DRUGS (2)
  1. XANAX [Suspect]
     Active Substance: ALPRAZOLAM
     Dosage: UNK
  2. NORTHERA [Interacting]
     Active Substance: DROXIDOPA
     Dosage: UNK

REACTIONS (2)
  - Drug interaction [Unknown]
  - Syncope [Unknown]
